FAERS Safety Report 5135188-0 (Version None)
Quarter: 2006Q4

REPORT INFORMATION
  Report Type: 
  Country: None (occurrence: None)
  Receive Date: 20061026
  Receipt Date: 20061012
  Transmission Date: 20070319
  Serious: Yes (Hospitalization)
  Sender: FDA-Public Use
  Company Number: PHBS2006US16131

PATIENT
  Age: 81 Year
  Sex: Female

DRUGS (7)
  1. HYDROCHLOROTHIAZIDE [Suspect]
  2. RAMIPRIL [Suspect]
  3. DONEPEZIL HCL [Suspect]
  4. MIRTAZAPINE [Suspect]
  5. ESCITALOPRAM [Suspect]
     Indication: DEPRESSION
     Dosage: 10 MG/DAY
  6. CITALOPRAM HYDROBROMIDE [Suspect]
  7. ALENDRONIC ACID [Suspect]

REACTIONS (16)
  - ASTHENIA [None]
  - BLOOD CALCIUM DECREASED [None]
  - BLOOD CHLORIDE DECREASED [None]
  - BLOOD CREATININE DECREASED [None]
  - BLOOD OSMOLARITY DECREASED [None]
  - BLOOD PHOSPHORUS DECREASED [None]
  - BLOOD SODIUM DECREASED [None]
  - BLOOD UREA DECREASED [None]
  - BLOOD URIC ACID DECREASED [None]
  - CONFUSIONAL STATE [None]
  - CREATININE URINE INCREASED [None]
  - DRUG INTERACTION [None]
  - FALL [None]
  - GLYCOSURIA [None]
  - PH URINE INCREASED [None]
  - RENAL TUBULAR DISORDER [None]
